FAERS Safety Report 9456942 (Version 2)
Quarter: 2013Q3

REPORT INFORMATION
  Report Type: Spontaneous
  Country: GB (occurrence: GB)
  Receive Date: 20130814
  Receipt Date: 20130821
  Transmission Date: 20140515
  Serious: Yes (Life-Threatening, Hospitalization, Other)
  Sender: FDA-Public Use
  Company Number: GB-B.I. PHARMACEUTICALS,INC./RIDGEFIELD-2013-UK-01640UK

PATIENT
  Age: 73 Year
  Sex: Female
  Weight: 67.9 kg

DRUGS (12)
  1. PRADAXA [Suspect]
     Indication: ATRIAL FIBRILLATION
     Dosage: 220 MG
     Route: 048
     Dates: start: 20130508, end: 20130514
  2. BISOPROLOL [Concomitant]
     Indication: ATRIAL FIBRILLATION
     Dosage: 2.5 MG
     Route: 048
     Dates: start: 20130604
  3. CEFALEXIN [Concomitant]
     Indication: UROSTOMY
     Dosage: 250 MG
     Route: 048
     Dates: start: 2010
  4. CO-CODAMOL 30/500 [Concomitant]
     Indication: PAIN
     Dosage: 2-8 (NOT FURTHER SPECIFIED)
     Route: 048
     Dates: start: 2009
  5. EZETIMIBE [Concomitant]
     Indication: BLOOD CHOLESTEROL INCREASED
     Dosage: 10 MG
     Route: 048
     Dates: start: 2005
  6. INDAPAMIDE [Concomitant]
     Indication: HYPERTENSION
     Dosage: 2.5 MG
     Route: 048
     Dates: start: 20130227
  7. LATANOPROST [Concomitant]
  8. LACTULOSE [Concomitant]
  9. LEVOTHYROXINE [Concomitant]
     Dosage: 100 MG
  10. OMEPRAZOLE [Concomitant]
     Dosage: 20 MG
  11. RAMIPRIL [Concomitant]
     Dosage: 5 MG
  12. ROSUVASTATIN [Concomitant]
     Dosage: 5 MG

REACTIONS (4)
  - Lower gastrointestinal haemorrhage [Recovered/Resolved]
  - Fall [Unknown]
  - Haemoglobin decreased [Unknown]
  - Dizziness [Unknown]
